FAERS Safety Report 9028018 (Version 1)
Quarter: 2013Q1

REPORT INFORMATION
  Report Type: Report from Study
  Country: US (occurrence: US)
  Receive Date: 20130123
  Receipt Date: 20130123
  Transmission Date: 20140127
  Serious: Yes (Other)
  Sender: FDA-Public Use
  Company Number: US-ROCHE-1179207

PATIENT
  Sex: Female

DRUGS (2)
  1. CAPECITABINE [Suspect]
     Indication: BREAST CANCER METASTATIC
     Dosage: ON DAYS 1 TO 7 AND 15 TO 21 OF A 28 DAY CYCLE
     Route: 048
  2. OXALIPLATIN [Suspect]
     Indication: BREAST CANCER METASTATIC
     Dosage: ON DAYS 1 AND 15
     Route: 042

REACTIONS (7)
  - Diarrhoea [Unknown]
  - Decreased appetite [Unknown]
  - Fatigue [Unknown]
  - Infection [Unknown]
  - Transaminases increased [Unknown]
  - Hypokalaemia [Unknown]
  - Hypophosphataemia [Unknown]
